FAERS Safety Report 16608806 (Version 1)
Quarter: 2019Q3

REPORT INFORMATION
  Report Type: Spontaneous
  Country: DE (occurrence: DE)
  Receive Date: 20190722
  Receipt Date: 20190722
  Transmission Date: 20191004
  Serious: Yes (Hospitalization)
  Sender: FDA-Public Use
  Company Number: DE-PFIZER INC-2019306030

PATIENT
  Age: 40 Year
  Sex: Female

DRUGS (4)
  1. CYCLOPHOSPHAMIDE. [Suspect]
     Active Substance: CYCLOPHOSPHAMIDE
     Dosage: NK MG,
     Dates: end: 20180118
  2. EPIRUBICIN HCL [Suspect]
     Active Substance: EPIRUBICIN HYDROCHLORIDE
     Dosage: NK MG,
     Dates: end: 20180118
  3. TINZAPARIN [Concomitant]
     Active Substance: TINZAPARIN
     Dosage: 12000 IU, 1X/DAY, 0-0-1-0
  4. LEVOTHYROXINE SODIUM. [Concomitant]
     Active Substance: LEVOTHYROXINE SODIUM
     Dosage: 88 UG, 1X/DAY, 1-0-0-0
     Route: 058

REACTIONS (6)
  - Nausea [Unknown]
  - Diarrhoea [Unknown]
  - Pyrexia [Unknown]
  - Vomiting [Unknown]
  - General physical health deterioration [Unknown]
  - Asthenia [Unknown]
